FAERS Safety Report 15773219 (Version 1)
Quarter: 2018Q4

REPORT INFORMATION
  Report Type: Spontaneous
  Country: ES (occurrence: ES)
  Receive Date: 20181228
  Receipt Date: 20181228
  Transmission Date: 20190205
  Serious: Yes (Other)
  Sender: FDA-Public Use
  Company Number: PHHY2014ES058603

PATIENT
  Age: 60 Year
  Sex: Male

DRUGS (2)
  1. MIRAPEXIN [Suspect]
     Active Substance: PRAMIPEXOLE
     Indication: PARKINSON^S DISEASE
     Dosage: 2.1 MG, QD
     Route: 048
     Dates: start: 200811, end: 201312
  2. STALEVO [Suspect]
     Active Substance: CARBIDOPA\ENTACAPONE\LEVODOPA
     Indication: PARKINSON^S DISEASE
     Dosage: 1 MG, QD
     Route: 048
     Dates: start: 200807, end: 20130111

REACTIONS (1)
  - Gambling disorder [Recovering/Resolving]

NARRATIVE: CASE EVENT DATE: 2009
